FAERS Safety Report 11173695 (Version 2)
Quarter: 2015Q2

REPORT INFORMATION
  Report Type: Spontaneous
  Country: US (occurrence: None)
  Receive Date: 20150605
  Receipt Date: 20150619
  Transmission Date: 20150821
  Serious: Yes (Death)
  Sender: FDA-Public Use
  Company Number: 2015TASUS000810

PATIENT
  Age: 88 Year
  Sex: Female

DRUGS (9)
  1. CITALOPRAM (CITALOPRAM HYDOCHLORIDE) [Concomitant]
  2. FUROSEMIDE (FUROSEMIDE SODIUM) [Concomitant]
  3. METOPROLOL (METOPROLOL TARTRATE) [Concomitant]
     Active Substance: METOPROLOL TARTRATE
  4. QUINAPRIL [Concomitant]
     Active Substance: QUINAPRIL\QUINAPRIL HYDROCHLORIDE
  5. CLONIDINE (CLONIDINE HYDROCHLORIDE) [Concomitant]
  6. HETLIOZ [Suspect]
     Active Substance: TASIMELTEON
     Indication: PRODUCT USED FOR UNKNOWN INDICATION
     Dosage: 20 MG, QHS, ORAL
     Route: 048
     Dates: start: 20150420
  7. DOXAZOSIN (DOXAZOSIN MESILATE) [Concomitant]
  8. TROSPIUM [Concomitant]
     Active Substance: TROSPIUM
  9. POTASSIUM (POTASSIUM CHLORIDE) [Concomitant]

REACTIONS (1)
  - Death [None]

NARRATIVE: CASE EVENT DATE: 20150524
